FAERS Safety Report 10208223 (Version 1)
Quarter: 2014Q2

REPORT INFORMATION
  Report Type: Spontaneous
  Country: US (occurrence: US)
  Receive Date: 20140530
  Receipt Date: 20140530
  Transmission Date: 20141212
  Serious: Yes (Other)
  Sender: FDA-Public Use
  Company Number: US-GLAXOSMITHKLINE-A1075037A

PATIENT
  Age: 74 Year
  Sex: Female

DRUGS (3)
  1. NICODERM CQ 21MG [Suspect]
     Indication: SMOKING CESSATION THERAPY
     Route: 062
     Dates: start: 20140528
  2. BLOOD PRESSURE MEDICATION [Concomitant]
  3. SLEEP-INDUCING DRUG, NAME UNKNOWN [Concomitant]

REACTIONS (8)
  - Nausea [Recovered/Resolved]
  - Decreased appetite [Recovered/Resolved]
  - Hypertension [Recovered/Resolved]
  - Shock [Recovered/Resolved]
  - Emotional distress [Recovered/Resolved]
  - Adverse event [Recovered/Resolved]
  - Drug administration error [Not Recovered/Not Resolved]
  - Expired product administered [Not Recovered/Not Resolved]
